FAERS Safety Report 22068148 (Version 2)
Quarter: 2023Q2

REPORT INFORMATION
  Report Type: Report from Study
  Country: BR (occurrence: BR)
  Receive Date: 20230307
  Receipt Date: 20230602
  Transmission Date: 20230721
  Serious: Yes (Other)
  Sender: FDA-Public Use
  Company Number: BR-CELLTRION INC.-2023BR004637

PATIENT

DRUGS (1)
  1. INFLIXIMAB [Suspect]
     Active Substance: INFLIXIMAB
     Indication: Product used for unknown indication
     Dosage: UNK
     Route: 042
     Dates: start: 20220929

REACTIONS (5)
  - Trigeminal neuralgia [Unknown]
  - Vocal cord paralysis [Recovering/Resolving]
  - Arthritis [Unknown]
  - Malaise [Unknown]
  - Intentional dose omission [Unknown]
